FAERS Safety Report 26082785 (Version 2)
Quarter: 2025Q4

REPORT INFORMATION
  Report Type: Spontaneous
  Country: JP (occurrence: JP)
  Receive Date: 20251124
  Receipt Date: 20251223
  Transmission Date: 20260117
  Serious: Yes (Disabling)
  Sender: EISAI
  Company Number: JP-Eisai-EC-2025-200613

PATIENT
  Age: 71 Year
  Sex: Female
  Weight: 36 kg

DRUGS (3)
  1. LENVIMA [Suspect]
     Active Substance: LENVATINIB
     Indication: Endometrial cancer recurrent
     Dosage: FREQUENCY UNKNOWN
     Route: 048
  2. LENVIMA [Suspect]
     Active Substance: LENVATINIB
     Route: 048
     Dates: start: 2025, end: 20250825
  3. KEYTRUDA [Suspect]
     Active Substance: PEMBROLIZUMAB
     Indication: Endometrial cancer recurrent
     Dosage: 4 COURSES
     Route: 042
     Dates: start: 20250612, end: 20250814

REACTIONS (1)
  - Dyslalia [Not Recovered/Not Resolved]

NARRATIVE: CASE EVENT DATE: 20251001
